FAERS Safety Report 10222013 (Version 1)
Quarter: 2014Q2

REPORT INFORMATION
  Report Type: Spontaneous
  Country: US (occurrence: None)
  Receive Date: 20140605
  Receipt Date: 20140605
  Transmission Date: 20141212
  Serious: Yes (Hospitalization)
  Sender: FDA-Public Use
  Company Number: None

PATIENT
  Age: 52 Year
  Sex: Male
  Weight: 121.8 kg

DRUGS (2)
  1. ALDESLEUKIN [Suspect]
     Indication: RENAL CELL CARCINOMA
     Dates: start: 20140519, end: 20140522
  2. ALDESLEUKIN [Suspect]
     Indication: METASTASIS
     Dates: start: 20140519, end: 20140522

REACTIONS (1)
  - Bacterial sepsis [None]
